FAERS Safety Report 5518660-0 (Version None)
Quarter: 2007Q4

REPORT INFORMATION
  Report Type: 
  Country: None (occurrence: None)
  Receive Date: 20071115
  Receipt Date: 20071109
  Transmission Date: 20080405
  Serious: Yes (Other)
  Sender: FDA-Public Use
  Company Number: US-BAYER-200712634BCC

PATIENT
  Age: 81 Year
  Sex: Female
  Weight: 59 kg

DRUGS (4)
  1. ASPIRIN [Suspect]
     Indication: ISCHAEMIC HEART DISEASE PROPHYLAXIS
     Dosage: UNIT DOSE: 325 MG
     Route: 048
     Dates: start: 20020101
  2. CORGARD [Concomitant]
  3. FOSAMAX [Concomitant]
  4. VITAMIN E SUPPLEMENT [Concomitant]

REACTIONS (3)
  - BLOOD TEST ABNORMAL [None]
  - FATIGUE [None]
  - GAIT DISTURBANCE [None]
